FAERS Safety Report 25725933 (Version 2)
Quarter: 2025Q3

REPORT INFORMATION
  Report Type: Spontaneous
  Country: US (occurrence: US)
  Receive Date: 20250826
  Receipt Date: 20250927
  Transmission Date: 20251020
  Serious: No
  Sender: IPSEN BIOPHARMACEUTICALS, INC.
  Company Number: US-IPSEN Group, Research and Development-2025-20436

PATIENT
  Age: 4 Year
  Sex: Female
  Weight: 15.3 kg

DRUGS (3)
  1. BYLVAY [Suspect]
     Active Substance: ODEVIXIBAT
     Indication: Metabolic disorder
     Dosage: 1200 MCG (1 CAPSULE) TOTAL BY MOUTH
     Route: 048
  2. BYLVAY [Suspect]
     Active Substance: ODEVIXIBAT
     Indication: Off label use
  3. BYLVAY [Suspect]
     Active Substance: ODEVIXIBAT
     Indication: Progressive familial intrahepatic cholestasis

REACTIONS (4)
  - Pruritus [Unknown]
  - Irritability [Unknown]
  - Product dose omission issue [Unknown]
  - Off label use [Unknown]
